FAERS Safety Report 5468720-8 (Version None)
Quarter: 2007Q3

REPORT INFORMATION
  Report Type: 
  Country: None (occurrence: None)
  Receive Date: 20070926
  Receipt Date: 20070914
  Transmission Date: 20080115
  Serious: Yes (Life-Threatening)
  Sender: FDA-Public Use
  Company Number: GB-ELI_LILLY_AND_COMPANY-GB200709002830

PATIENT
  Age: 42 Year
  Sex: Female
  Weight: 84 kg

DRUGS (5)
  1. CYMBALTA [Suspect]
     Indication: DEPRESSION
     Dosage: 60 MG, DAILY (1/D)
     Route: 048
     Dates: start: 20070620, end: 20070709
  2. CINNARIZINE [Concomitant]
     Indication: VERTIGO
     Dosage: 15 MG, 3/D
     Route: 048
     Dates: start: 20070622, end: 20070720
  3. DIAZEPAM [Concomitant]
     Indication: ANXIETY
     Dosage: 5 MG, 2/D
     Route: 048
     Dates: start: 20070620
  4. DICYCLOVERINE [Concomitant]
     Indication: IRRITABLE BOWEL SYNDROME
     Dosage: 10 MG, 3/D
     Route: 048
     Dates: start: 20070620, end: 20070630
  5. FLUOXETINE [Concomitant]
     Indication: DEPRESSION
     Dosage: 60 MG, DAILY (1/D)
     Route: 048
     Dates: start: 20070502, end: 20070530

REACTIONS (2)
  - DEPRESSIVE SYMPTOM [None]
  - SUICIDAL IDEATION [None]
